FAERS Safety Report 4493360-7 (Version None)
Quarter: 2004Q4

REPORT INFORMATION
  Report Type: 
  Country: None (occurrence: None)
  Receive Date: 20041102
  Receipt Date: 20040903
  Transmission Date: 20050328
  Serious: Yes (Death, Hospitalization)
  Sender: FDA-Public Use
  Company Number: 140504USA

PATIENT
  Age: 66 Year
  Sex: Male
  Weight: 68.0396 kg

DRUGS (1)
  1. PROPOFOL [Suspect]
     Indication: AGITATION
     Dosage: 1 MG/ML INTRAVENOUS DRIP
     Route: 041
     Dates: start: 20040816, end: 20040816

REACTIONS (7)
  - ATRIOVENTRICULAR BLOCK COMPLETE [None]
  - CARDIO-RESPIRATORY ARREST [None]
  - DEVICE FAILURE [None]
  - LOSS OF CONSCIOUSNESS [None]
  - PEDAL PULSE ABSENT [None]
  - PHARMACEUTICAL PRODUCT COMPLAINT [None]
  - VENTRICULAR FIBRILLATION [None]
